FAERS Safety Report 6769962-1 (Version None)
Quarter: 2010Q2

REPORT INFORMATION
  Report Type: 
  Country: None (occurrence: None)
  Receive Date: 20100615
  Receipt Date: 20100608
  Transmission Date: 20101027
  Serious: Yes (Death, Life-Threatening)
  Sender: FDA-Public Use
  Company Number: B0660160A

PATIENT
  Sex: Female
  Weight: 55 kg

DRUGS (25)
  1. ARRANON [Suspect]
     Dosage: 1000MGM2 PER DAY
     Route: 042
     Dates: start: 20100304, end: 20100304
  2. ARRANON [Suspect]
     Dosage: 1000MGM2 PER DAY
     Route: 042
     Dates: start: 20100306, end: 20100306
  3. ARRANON [Suspect]
     Dosage: 1000MGM2 PER DAY
     Route: 042
     Dates: start: 20100308, end: 20100308
  4. ADRIACIN [Concomitant]
     Indication: NEOPLASM MALIGNANT
     Route: 042
     Dates: start: 20100223, end: 20100224
  5. PREDONINE [Concomitant]
     Indication: NEOPLASM MALIGNANT
     Dates: start: 20100223, end: 20100303
  6. PREDONINE [Concomitant]
     Dates: start: 20100304, end: 20100315
  7. GRANISETRON [Concomitant]
     Indication: ANTIEMETIC SUPPORTIVE CARE
     Route: 042
     Dates: start: 20100304, end: 20100304
  8. GRANISETRON [Concomitant]
     Route: 042
     Dates: start: 20100306, end: 20100306
  9. GRANISETRON [Concomitant]
     Route: 042
     Dates: start: 20100308, end: 20100308
  10. FUROSEMIDE [Concomitant]
     Route: 042
     Dates: start: 20100304, end: 20100319
  11. SULPERAZON [Concomitant]
     Route: 042
     Dates: start: 20100304, end: 20100310
  12. MEYLON [Concomitant]
     Route: 042
     Dates: start: 20100304, end: 20100309
  13. VANCOMYCIN [Concomitant]
     Route: 042
     Dates: start: 20100304, end: 20100310
  14. TAGAMET [Concomitant]
     Indication: GASTROINTESTINAL DISORDER
     Route: 042
     Dates: start: 20100304, end: 20100316
  15. BUMINATE [Concomitant]
     Route: 042
     Dates: start: 20100308, end: 20100319
  16. DOPAMINE HCL [Concomitant]
     Indication: POLYURIA
     Route: 042
     Dates: start: 20100308, end: 20100319
  17. ADONA (AC-17) [Concomitant]
     Dates: start: 20100311, end: 20100319
  18. TRANSAMIN [Concomitant]
     Dates: start: 20100311, end: 20100319
  19. DECADRON [Concomitant]
     Dates: start: 20100316, end: 20100319
  20. GASTER [Concomitant]
     Indication: GASTROINTESTINAL DISORDER
     Route: 042
     Dates: start: 20100317, end: 20100319
  21. CEFOPERAZONE SODIUM [Concomitant]
     Route: 042
     Dates: start: 20100318, end: 20100319
  22. ZYLORIC [Concomitant]
     Indication: PROPHYLAXIS
     Route: 048
     Dates: start: 20100304, end: 20100319
  23. CALONAL [Concomitant]
     Route: 048
     Dates: start: 20100304, end: 20100319
  24. MAGLAX [Concomitant]
     Indication: LAXATIVE SUPPORTIVE CARE
     Route: 048
     Dates: start: 20100304, end: 20100319
  25. NAPROXEN [Concomitant]
     Route: 048
     Dates: start: 20100305, end: 20100319

REACTIONS (4)
  - HEPATIC FAILURE [None]
  - MELAENA [None]
  - OXYGEN SATURATION DECREASED [None]
  - PLEURAL EFFUSION [None]
